FAERS Safety Report 6882065-0 (Version None)
Quarter: 2010Q3

REPORT INFORMATION
  Report Type: 
  Country: None (occurrence: None)
  Receive Date: 20100729
  Receipt Date: 20100723
  Transmission Date: 20110219
  Serious: Yes (Life-Threatening, Hospitalization, Other)
  Sender: FDA-Public Use
  Company Number: GB-ASTRAZENECA-2010SE26843

PATIENT
  Sex: Male

DRUGS (2)
  1. SEROQUEL XR [Suspect]
     Indication: SCHIZOPHRENIA
     Route: 048
     Dates: start: 20100401
  2. ANTIDEPRESSANTS [Concomitant]

REACTIONS (4)
  - DELUSION [None]
  - OVERDOSE [None]
  - PSYCHOTIC DISORDER [None]
  - SUICIDAL IDEATION [None]
